FAERS Safety Report 23850051 (Version 1)
Quarter: 2024Q2

REPORT INFORMATION
  Report Type: Spontaneous
  Country: US (occurrence: None)
  Receive Date: 20240513
  Receipt Date: 20240513
  Transmission Date: 20240716
  Serious: Yes (Hospitalization)
  Sender: FDA-Public Use
  Company Number: None

PATIENT
  Age: 78 Year
  Sex: Male

DRUGS (1)
  1. VANCOMYCIN HYDROCHLORIDE [Suspect]
     Active Substance: VANCOMYCIN HYDROCHLORIDE
     Dosage: OTHER STRENGTH : 1.5GM/VIL;?
     Dates: start: 20240508, end: 20240508

REACTIONS (3)
  - Respiratory depression [None]
  - Infusion related reaction [None]
  - Hospitalisation [None]

NARRATIVE: CASE EVENT DATE: 20240508
